FAERS Safety Report 9271692 (Version 1)
Quarter: 2013Q2

REPORT INFORMATION
  Report Type: Spontaneous
  Country: US (occurrence: US)
  Receive Date: 20130506
  Receipt Date: 20130506
  Transmission Date: 20140414
  Serious: Yes (Death, Other)
  Sender: FDA-Public Use
  Company Number: US-COVIDIEN/TYCO HEALTHCARE/MALLINCKRODT-T201301142

PATIENT
  Sex: Male

DRUGS (3)
  1. HYDROCODONE/ACETAMINOPHEN [Suspect]
     Dosage: UNK
  2. IMURAN /00001501/ [Suspect]
     Dosage: 200 MG, UNK
  3. HUMIRA [Suspect]

REACTIONS (2)
  - Pharyngeal oedema [Unknown]
  - Dyspnoea [Unknown]
